FAERS Safety Report 7821747-0 (Version None)
Quarter: 2011Q4

REPORT INFORMATION
  Report Type: 
  Country: None (occurrence: None)
  Receive Date: 20111018
  Receipt Date: 20100930
  Transmission Date: 20120403
  Serious: No
  Sender: FDA-Public Use
  Company Number: US-ASTRAZENECA-2010SE43069

PATIENT
  Sex: Female

DRUGS (4)
  1. SYMBICORT [Suspect]
     Dosage: 160/ 4.5 MCG  DAILY
     Route: 055
  2. OXYGEN [Concomitant]
  3. NEBULIZER [Concomitant]
  4. SYMBICORT [Suspect]
     Route: 055

REACTIONS (2)
  - DYSPNOEA [None]
  - DRUG INEFFECTIVE [None]
